FAERS Safety Report 14603711 (Version 1)
Quarter: 2018Q1

REPORT INFORMATION
  Report Type: Spontaneous
  Country: NL (occurrence: NL)
  Receive Date: 20180306
  Receipt Date: 20180306
  Transmission Date: 20180509
  Serious: Yes (Other)
  Sender: FDA-Public Use
  Company Number: NL-SA-2018SA050238

PATIENT
  Sex: Female
  Weight: 85 kg

DRUGS (5)
  1. AUBAGIO [Suspect]
     Active Substance: TERIFLUNOMIDE
     Indication: MULTIPLE SCLEROSIS
     Route: 048
     Dates: start: 20171204
  2. VENTOLIN [Concomitant]
     Active Substance: ALBUTEROL SULFATE
     Route: 065
  3. MICROGYNON [Concomitant]
     Active Substance: ETHINYL ESTRADIOL\LEVONORGESTREL ACETATE
     Route: 065
  4. FLIXONASE [Concomitant]
     Active Substance: FLUTICASONE PROPIONATE
     Dosage: FORM AND ROUTEL NEUSSPRAY
     Route: 065
  5. CHLORAMPHENICOL [Concomitant]
     Active Substance: CHLORAMPHENICOL
     Route: 065

REACTIONS (3)
  - Panniculitis [Recovering/Resolving]
  - Rash erythematous [Recovering/Resolving]
  - Skin mass [Recovering/Resolving]

NARRATIVE: CASE EVENT DATE: 20171212
